FAERS Safety Report 18779731 (Version 1)
Quarter: 2021Q1

REPORT INFORMATION
  Report Type: Report from Study
  Country: FR (occurrence: FR)
  Receive Date: 20210125
  Receipt Date: 20210125
  Transmission Date: 20210419
  Serious: Yes (Death, Life-Threatening)
  Sender: FDA-Public Use
  Company Number: FR-ROCHE-2753783

PATIENT
  Age: 61 Year
  Sex: Female

DRUGS (5)
  1. BEVACIZUMAB. [Suspect]
     Active Substance: BEVACIZUMAB
     Indication: OVARIAN CANCER
     Dosage: FREQUENCY EVERY CYCLICAL.?ON 26/JUN/2018, SHE RECEIVED MOST RECENT DOSE OF BEVACIZUMAB PRIOR TO EVEN
     Route: 042
     Dates: start: 20170918
  2. BISOCE [Concomitant]
     Active Substance: BISOPROLOL
     Route: 048
  3. CARBOPLATIN. [Suspect]
     Active Substance: CARBOPLATIN
     Indication: OVARIAN CANCER
     Dosage: FREQUENCY EVERY CYCLICAL.?ON 10/JAN/2018, SHE RECEIVED MOST RECENT DOSE OF CARBOPLATIN PRIOR TO EVEN
     Route: 042
     Dates: start: 20170918
  4. DOXORUBICIN [Suspect]
     Active Substance: DOXORUBICIN
     Indication: OVARIAN CANCER
     Dosage: FREQUENCY EVERY CYCLICAL.?ON 10/JAN/2018, SHE RECEIVED MOST RECENT DOSE OF DOXORUBICIN HYDROCHLORIDE
     Route: 042
     Dates: start: 20170918
  5. BLINDED ATEZOLIZUMAB [Suspect]
     Active Substance: ATEZOLIZUMAB
     Indication: OVARIAN CANCER
     Dosage: FREQUENCY EVERY CYCLICAL.?ON 26/JUN/2018, SHE RECEIVED MOST RECENT DOSE OF ATEZOLIZUMAB PRIOR TO EVE
     Route: 042
     Dates: start: 20170918

REACTIONS (4)
  - Loss of consciousness [Fatal]
  - Renal failure [Recovered/Resolved]
  - Hypercalcaemia [Not Recovered/Not Resolved]
  - Cardiac arrest [Fatal]

NARRATIVE: CASE EVENT DATE: 20180719
